FAERS Safety Report 6334478-3 (Version None)
Quarter: 2009Q3

REPORT INFORMATION
  Report Type: 
  Country: None (occurrence: None)
  Receive Date: 20090827
  Receipt Date: 20090820
  Transmission Date: 20100115
  Serious: Yes (Hospitalization)
  Sender: FDA-Public Use
  Company Number: TPA2009A02384

PATIENT
  Age: 78 Year
  Sex: Female

DRUGS (9)
  1. ULORIC [Suspect]
     Indication: GOUT
     Dosage: 40 MG, 1 IN 1 D, PER ORAL
     Route: 048
     Dates: start: 20090601
  2. LANTUS [Concomitant]
  3. AMARYL [Concomitant]
  4. COUMADIN [Concomitant]
  5. ZOCOR [Concomitant]
  6. EXFORGE (AMLODIPINE, VALSARTAN) [Concomitant]
  7. TOPROL (METOPROLOL TARTRATE) [Concomitant]
  8. PROTONIX [Concomitant]
  9. LASIX [Concomitant]

REACTIONS (1)
  - SKIN ULCER [None]
